FAERS Safety Report 7715645-0 (Version None)
Quarter: 2011Q3

REPORT INFORMATION
  Report Type: 
  Country: None (occurrence: None)
  Receive Date: 20110823
  Receipt Date: 20110811
  Transmission Date: 20111222
  Serious: Yes (Other)
  Sender: FDA-Public Use
  Company Number: 1000020779

PATIENT
  Age: 71 Year
  Sex: Male
  Weight: 85 kg

DRUGS (12)
  1. SYMBICORT (BUDESONIDE, FORMOTEROL FUMARATE) (BUDESONIDE, FORMOTEROL FU [Concomitant]
  2. SPIRIVA (TIOTROPIUM BROMIDE) (TIOTROPIUM BROMIDE) [Concomitant]
  3. METFORMIN (METFORMIN) (1000 MILLIGRAM) (METFORMIN) [Concomitant]
  4. BERODUAL (FENOTEROL, IPRATROPIUM) (FENOTEROL, IPRATROPIUM) [Concomitant]
  5. ROFLUMILAST (ROFLUMILAST) [Suspect]
     Dosage: 500 MCG (500 MCG, 1 IN 1 D), ORAL
     Route: 048
     Dates: start: 20110320, end: 20110401
  6. ROFLUMILAST (ROFLUMILAST) [Suspect]
     Dosage: 500 MCG (500 MCG, 1 IN 1 D), ORAL
     Route: 048
     Dates: start: 20110407, end: 20110417
  7. BEROTEC (FENOTEROL HYDROBROMIDE) (FENOTEROL HYDROBROMIDE) [Concomitant]
  8. VERAPAMIL (VERAPAMIL) (120 MILLIGRAM) (VERAPAMIL) [Concomitant]
  9. PRAVASTATIN [Concomitant]
  10. RAMIPRIL [Concomitant]
  11. ALLOPURINOL (ALLOPURINOL) (300 MILLIGRAM) (ALLOPURINOL) [Concomitant]
  12. PREDNISOLONE [Concomitant]

REACTIONS (4)
  - RASH PRURITIC [None]
  - RASH PUSTULAR [None]
  - BACK PAIN [None]
  - DRUG HYPERSENSITIVITY [None]
